FAERS Safety Report 10216063 (Version 1)
Quarter: 2014Q2

REPORT INFORMATION
  Report Type: Spontaneous
  Country: US (occurrence: US)
  Receive Date: 20140604
  Receipt Date: 20140604
  Transmission Date: 20141212
  Serious: No
  Sender: FDA-Public Use
  Company Number: US-ASTRAZENECA-2014SE35984

PATIENT
  Age: 55 Year
  Sex: Male
  Weight: 74.4 kg

DRUGS (4)
  1. NEXIUM [Suspect]
     Indication: GASTROOESOPHAGEAL REFLUX DISEASE
     Route: 048
     Dates: start: 2006, end: 201404
  2. NEXIUM [Suspect]
     Indication: GASTROOESOPHAGEAL REFLUX DISEASE
     Dosage: RESTARTED NEXIUM
     Route: 048
  3. NEXIUM [Suspect]
     Indication: GASTROOESOPHAGEAL REFLUX DISEASE
     Dosage: TAKING EXTRA NEXIUM
     Route: 048
  4. FLONASE [Concomitant]
     Indication: NASAL POLYPS
     Dosage: UNKNOWN DAILY
     Route: 045
     Dates: start: 1996

REACTIONS (8)
  - Disease recurrence [Unknown]
  - Dyspepsia [Unknown]
  - Coeliac disease [Unknown]
  - Gastrooesophageal reflux disease [Unknown]
  - Upper-airway cough syndrome [Unknown]
  - Oesophageal pain [Unknown]
  - Intentional product misuse [Unknown]
  - Drug dose omission [Unknown]
